FAERS Safety Report 5649334-3 (Version None)
Quarter: 2008Q1

REPORT INFORMATION
  Report Type: 
  Country: None (occurrence: None)
  Receive Date: 20080304
  Receipt Date: 20071215
  Transmission Date: 20080703
  Serious: No
  Sender: FDA-Public Use
  Company Number: US-BAYER-200810167NA

PATIENT
  Age: 40 Year
  Sex: Male

DRUGS (1)
  1. ULTRAVIST (PHARMACY BULK) [Suspect]
     Indication: COMPUTERISED TOMOGRAM
     Dosage: TOTAL DAILY DOSE: 85 ML  UNIT DOSE: 85 ML
     Route: 042
     Dates: start: 20071215, end: 20071215

REACTIONS (2)
  - PRURITUS [None]
  - URTICARIA [None]
